FAERS Safety Report 14316697 (Version 3)
Quarter: 2018Q1

REPORT INFORMATION
  Report Type: Spontaneous
  Country: US (occurrence: US)
  Receive Date: 20171222
  Receipt Date: 20180122
  Transmission Date: 20180509
  Serious: Yes (Other)
  Sender: FDA-Public Use
  Company Number: US-PFIZER INC-2017542536

PATIENT
  Age: 60 Year
  Sex: Male

DRUGS (15)
  1. ARAVA [Suspect]
     Active Substance: LEFLUNOMIDE
     Indication: RHEUMATOID ARTHRITIS
     Dosage: UNK
  2. ENBREL [Concomitant]
     Active Substance: ETANERCEPT
     Dosage: 50 MG, WEEKLY (INJECT 50 MG UNDER THE SKIN ONCE WEEKLY)
     Route: 058
     Dates: start: 20170321
  3. ANDROGEL [Concomitant]
     Active Substance: TESTOSTERONE
     Dosage: UNK UNK, DAILY (APPLY A TOTAL OF 2 PUMPS TO SKIN EVERY DAY AS DIRECTED)
     Route: 061
  4. DESLORATADINE. [Concomitant]
     Active Substance: DESLORATADINE
     Dosage: 5 MG, AS NEEDED (1 TABLET ORALLY ONCE A DAY AS NEEDED )
     Route: 048
  5. MAG-OX [Concomitant]
     Active Substance: MAGNESIUM OXIDE
     Dosage: 400 MG, 1X/DAY
     Route: 048
  6. HYDROXYCHLOROQUINE SULFATE. [Concomitant]
     Active Substance: HYDROXYCHLOROQUINE SULFATE
     Dosage: 200 MG, 2X/DAY [TAKE 1 TABLET TWICE DAILY]
     Route: 048
  7. AMLODIPINE BESYLATE. [Concomitant]
     Active Substance: AMLODIPINE BESYLATE
     Dosage: 5 MG, DAILY [TAKE 1 TABLET BY MOUTH EVERY DAY ]
     Route: 048
  8. METOPROLOL TARTRATE. [Concomitant]
     Active Substance: METOPROLOL TARTRATE
     Dosage: 25 MG, 2X/DAY
     Route: 048
  9. CALCIUM + D [Concomitant]
     Active Substance: CALCIUM\VITAMIN D
     Dosage: 1 DF, 1X/DAY  [CALCIUM CARBONATE-600 MG] [COLECALCIFEROL-200 MG]
     Route: 048
  10. FLUTICASONE PROPIONATE. [Concomitant]
     Active Substance: FLUTICASONE PROPIONATE
     Dosage: UNK, DAILY [SPRAY 2 SPRAYS IN EACH NOSTRIL DAILY]
     Route: 045
  11. PREDNISONE. [Concomitant]
     Active Substance: PREDNISONE
     Dosage: UNK , AS NEEDED [TAKE 1 - 2 TAB(S) ONCE A DAY, AS NEEDED ORALLY ]
     Route: 048
  12. METHOTREXATE SODIUM. [Suspect]
     Active Substance: METHOTREXATE SODIUM
     Indication: RHEUMATOID ARTHRITIS
     Dosage: 11 MG, 1X/DAY
     Route: 048
  13. HYDROXYCHLOROQUINE [Concomitant]
     Active Substance: HYDROXYCHLOROQUINE
     Dosage: UNK
  14. IBUPROFEN. [Concomitant]
     Active Substance: IBUPROFEN
     Dosage: 1 DF, AS NEEDED [TAKE 1 TABLET BY MOUTH THREE TIMES DAILY AS NEEDED]
     Route: 048
  15. PSEUDOEPHEDRINE HCL [Concomitant]
     Active Substance: PSEUDOEPHEDRINE HYDROCHLORIDE
     Dosage: 30 MG, AS NEEDED (1 TABLET AS NEEDED ORALLY EVERY 6 HRS)
     Route: 048
     Dates: start: 20171120

REACTIONS (2)
  - Drug hypersensitivity [Unknown]
  - Leukopenia [Unknown]

NARRATIVE: CASE EVENT DATE: 2017
